FAERS Safety Report 17707466 (Version 1)
Quarter: 2020Q2

REPORT INFORMATION
  Report Type: Spontaneous
  Country: US (occurrence: US)
  Receive Date: 20200424
  Receipt Date: 20200424
  Transmission Date: 20200714
  Serious: Yes (Death, Other)
  Sender: FDA-Public Use
  Company Number: US-PFIZER INC-2020164561

PATIENT
  Age: 52 Year
  Sex: Male

DRUGS (3)
  1. OXYCONTIN [Suspect]
     Active Substance: OXYCODONE HYDROCHLORIDE
     Dosage: UNK
  2. NEURONTIN [Suspect]
     Active Substance: GABAPENTIN
     Dosage: UNK
  3. XANAX [Suspect]
     Active Substance: ALPRAZOLAM

REACTIONS (4)
  - Paranoia [Unknown]
  - Anxiety [Unknown]
  - Hallucination [Unknown]
  - Completed suicide [Fatal]
